FAERS Safety Report 8023312-1 (Version None)
Quarter: 2012Q1

REPORT INFORMATION
  Report Type: 
  Country: None (occurrence: None)
  Receive Date: 20120104
  Receipt Date: 20111230
  Transmission Date: 20120608
  Serious: Yes (Death, Hospitalization)
  Sender: FDA-Public Use
  Company Number: ES-ROCHE-1014933

PATIENT
  Sex: Female
  Weight: 52 kg

DRUGS (6)
  1. ALLOPURINOL [Concomitant]
     Dates: start: 20110714
  2. MABTHERA [Suspect]
     Indication: CHRONIC LYMPHOCYTIC LEUKAEMIA
     Route: 042
     Dates: start: 20110721, end: 20111128
  3. ACIDO FOLICO [Concomitant]
     Dates: start: 20110714
  4. OMEPRAZOLE [Concomitant]
     Dates: start: 20110714
  5. LAMIVUDINA [Concomitant]
     Dates: start: 20090101
  6. BENDAMUSTINE [Suspect]
     Indication: CHRONIC LYMPHOCYTIC LEUKAEMIA
     Route: 042
     Dates: start: 20110719, end: 20111125

REACTIONS (2)
  - UPPER GASTROINTESTINAL HAEMORRHAGE [None]
  - CHOLECYSTITIS [None]
